FAERS Safety Report 23532711 (Version 2)
Quarter: 2024Q2

REPORT INFORMATION
  Report Type: Other
  Country: FR (occurrence: FR)
  Receive Date: 20240216
  Receipt Date: 20240409
  Transmission Date: 20240716
  Serious: Yes (Hospitalization, Other)
  Sender: FDA-Public Use
  Company Number: None

PATIENT

DRUGS (4)
  1. RUXOLITINIB [Suspect]
     Active Substance: RUXOLITINIB
     Indication: Autoimmune myocarditis
     Dosage: 30 MG, QD (15 MG X2/J)
     Route: 048
     Dates: start: 20231221
  2. RUXOLITINIB [Suspect]
     Active Substance: RUXOLITINIB
     Dosage: 15 MG (0.5 DAY)
     Route: 048
     Dates: start: 20231221, end: 20240121
  3. OPDIVO [Suspect]
     Active Substance: NIVOLUMAB
     Indication: Superficial spreading melanoma stage unspecified
     Dosage: 480 MG, Q4W
     Route: 042
     Dates: start: 20231122, end: 20231122
  4. ORENCIA [Suspect]
     Active Substance: ABATACEPT
     Indication: Autoimmune myocarditis
     Dosage: 20 MG/KG, CYCLIC (DATE OF LAST ADMINISTRATION :17-JAN-2024)
     Route: 042
     Dates: start: 20231221, end: 20240117

REACTIONS (2)
  - Pulmonary embolism [Recovering/Resolving]
  - Off label use [Unknown]

NARRATIVE: CASE EVENT DATE: 20240109
